FAERS Safety Report 11939713 (Version 5)
Quarter: 2016Q2

REPORT INFORMATION
  Report Type: Spontaneous
  Country: US (occurrence: US)
  Receive Date: 20160122
  Receipt Date: 20160628
  Transmission Date: 20160815
  Serious: Yes (Hospitalization, Other)
  Sender: FDA-Public Use
  Company Number: US-009507513-1601USA006986

PATIENT
  Sex: Female
  Weight: 61.22 kg

DRUGS (2)
  1. NUVARING [Suspect]
     Active Substance: ETHINYL ESTRADIOL\ETONOGESTREL
     Dosage: 0.12-0.015MG / 24 HOURS
     Route: 067
     Dates: start: 20131118
  2. NUVARING [Suspect]
     Active Substance: ETHINYL ESTRADIOL\ETONOGESTREL
     Indication: CONTRACEPTION
     Dosage: 0.12-0.015MG / 24 HR
     Route: 067
     Dates: start: 201310, end: 20140218

REACTIONS (13)
  - Chest pain [Unknown]
  - Adjustment disorder with anxiety [Not Recovered/Not Resolved]
  - Incorrect drug administration duration [Unknown]
  - Headache [Unknown]
  - Swelling [Unknown]
  - Increased tendency to bruise [Unknown]
  - Menorrhagia [Unknown]
  - Maternal exposure before pregnancy [Unknown]
  - Therapeutic response decreased [Unknown]
  - Pulmonary embolism [Recovering/Resolving]
  - Dyspnoea [Unknown]
  - Decreased appetite [Unknown]
  - Deep vein thrombosis [Unknown]

NARRATIVE: CASE EVENT DATE: 201310
